FAERS Safety Report 4705318-0 (Version None)
Quarter: 2005Q2

REPORT INFORMATION
  Report Type: 
  Country: None (occurrence: None)
  Receive Date: 20050629
  Receipt Date: 20050613
  Transmission Date: 20051028
  Serious: Yes (Other)
  Sender: FDA-Public Use
  Company Number: TRP_0141_2005

PATIENT
  Age: 48 Year
  Sex: Female

DRUGS (11)
  1. RIBASPHERE [Suspect]
     Indication: HEPATITIS C
  2. REBETOL [Suspect]
     Indication: HEPATITIS C
     Dosage: DF SC
     Route: 058
     Dates: start: 20040923
  3. PEG-INTRON [Suspect]
     Indication: HEPATITIS C
     Dosage: DF SC
     Route: 058
     Dates: start: 20040923
  4. AMITRIPTYLINE HCL [Concomitant]
  5. CARDIZEM [Concomitant]
  6. LANOXIN [Concomitant]
  7. PROZAC [Concomitant]
  8. RESTORIL [Concomitant]
  9. XANAX [Concomitant]
  10. ZYPREXA [Concomitant]
  11. LANOXIN [Concomitant]

REACTIONS (1)
  - DRUG WITHDRAWAL SYNDROME [None]
